FAERS Safety Report 5024088-2 (Version None)
Quarter: 2006Q2

REPORT INFORMATION
  Report Type: 
  Country: None (occurrence: None)
  Receive Date: 20060607
  Receipt Date: 20060526
  Transmission Date: 20061013
  Serious: Yes (Death)
  Sender: FDA-Public Use
  Company Number: 2006069964

PATIENT
  Age: 78 Year
  Sex: Female

DRUGS (3)
  1. DIABINESE [Suspect]
     Indication: DIABETES MELLITUS
  2. ANTIHYPERTENSIVE (ANTIHYPERTENSIVE) [Concomitant]
  3. ALL OTHER THERAPEUTIC PRODUCTS(ALL OTHER THERAPEUTIC PRODUCTS) [Concomitant]

REACTIONS (1)
  - DEATH [None]
